FAERS Safety Report 12861627 (Version 3)
Quarter: 2016Q4

REPORT INFORMATION
  Report Type: Spontaneous
  Country: US (occurrence: US)
  Receive Date: 20161019
  Receipt Date: 20161117
  Transmission Date: 20170207
  Serious: Yes (Other)
  Sender: FDA-Public Use
  Company Number: US-PFIZER INC-2016429997

PATIENT
  Age: 69 Year
  Sex: Male
  Weight: 112 kg

DRUGS (11)
  1. MOBIC [Concomitant]
     Active Substance: MELOXICAM
     Dosage: 15 MG, AS NEEDED (TAKE 1 TABLET BY MOUTH 1 TIME DAILY AS NEEDED )
     Route: 048
     Dates: start: 20151125
  2. DAILY-VITE [Concomitant]
     Dosage: 1 DF, DAILY
     Route: 048
  3. SUTENT [Suspect]
     Active Substance: SUNITINIB MALATE
     Dosage: 50 MG, CYCLIC (2 WEEKS ON/1 WEEK OFF)
     Route: 048
     Dates: start: 20160924
  4. LIPITOR [Concomitant]
     Active Substance: ATORVASTATIN CALCIUM
     Dosage: 10 MG, DAILY
     Route: 048
     Dates: start: 20160819
  5. SUTENT [Suspect]
     Active Substance: SUNITINIB MALATE
     Indication: METASTATIC RENAL CELL CARCINOMA
     Dosage: 50 MG, CYCLIC (1 DAILY X 14 DAYS, 7 DAYS OFF THEN REPEAT)
     Route: 048
     Dates: start: 20160902
  6. ZYLOPRIM [Concomitant]
     Active Substance: ALLOPURINOL
     Dosage: 300 MG, DAILY
     Route: 048
  7. IMODIUM [Concomitant]
     Active Substance: LOPERAMIDE HYDROCHLORIDE
     Indication: DIARRHOEA
     Dosage: 8 MG, UNK (WITH THE FIRST LOOSE STOOL)
     Route: 048
     Dates: start: 20160902
  8. CYANOCOBALAMIN. [Concomitant]
     Active Substance: CYANOCOBALAMIN
     Dosage: 1000 UG, DAILY
     Route: 048
  9. STOOL SOFTENER (DOCUSATE CALCIUM) [Concomitant]
     Active Substance: DOCUSATE CALCIUM
     Dosage: UNK
  10. COZAAR [Concomitant]
     Active Substance: LOSARTAN POTASSIUM
     Dosage: 25 MG, DAILY
     Route: 048
     Dates: start: 20160817
  11. IMODIUM [Concomitant]
     Active Substance: LOPERAMIDE HYDROCHLORIDE
     Dosage: 2 MG, UNK (EVERY 2 HOURS UNTIL NO DIARRHEA FOR 12 HOURS)
     Route: 048
     Dates: start: 20160902

REACTIONS (9)
  - Pain in extremity [Recovering/Resolving]
  - Dry skin [Unknown]
  - Ageusia [Unknown]
  - White blood cell count decreased [Recovering/Resolving]
  - Blood pressure increased [Recovering/Resolving]
  - Skin fissures [Unknown]
  - Diarrhoea [Unknown]
  - Dyspepsia [Unknown]
  - Dysgeusia [Not Recovered/Not Resolved]
